FAERS Safety Report 14965245 (Version 2)
Quarter: 2018Q4

REPORT INFORMATION
  Report Type: Report from Study
  Country: JP (occurrence: JP)
  Receive Date: 20180601
  Receipt Date: 20181001
  Transmission Date: 20190204
  Serious: Yes (Other)
  Sender: FDA-Public Use
  Company Number: JP-009507513-1805JPN002999J

PATIENT
  Age: 70 Year
  Sex: Male
  Weight: 41 kg

DRUGS (19)
  1. LANSOPRAZOLE. [Concomitant]
     Active Substance: LANSOPRAZOLE
     Indication: TRANSITIONAL CELL CARCINOMA
     Dosage: 30 MG, QD
     Route: 048
     Dates: start: 20180327, end: 20180619
  2. AMLODIPINE [Concomitant]
     Active Substance: AMLODIPINE BESYLATE
     Indication: TRANSITIONAL CELL CARCINOMA
     Dosage: 2.5 MG, QD
     Route: 048
     Dates: start: 20180418, end: 20180425
  3. OPSO [Concomitant]
     Active Substance: MORPHINE HYDROCHLORIDE
     Indication: TRANSITIONAL CELL CARCINOMA
     Dosage: 5 G, PRN
     Route: 048
     Dates: start: 20180328
  4. AMITIZA [Concomitant]
     Active Substance: LUBIPROSTONE
     Dosage: 48 MICROGRAM, BID
     Route: 048
     Dates: start: 20180510, end: 20180530
  5. OXYCONTIN [Concomitant]
     Active Substance: OXYCODONE HYDROCHLORIDE
     Indication: TRANSITIONAL CELL CARCINOMA
     Dosage: 5 MG, QD
     Route: 048
     Dates: start: 20180502, end: 20180523
  6. ROHYPNOL [Concomitant]
     Active Substance: FLUNITRAZEPAM
     Indication: TRANSITIONAL CELL CARCINOMA
     Dosage: 1 MG, QD
     Route: 048
     Dates: start: 20180516, end: 20180521
  7. AMLODIPINE [Concomitant]
     Active Substance: AMLODIPINE BESYLATE
     Dosage: 5 MG, QD
     Route: 048
     Dates: start: 20180425, end: 20180620
  8. BELSOMRA [Concomitant]
     Active Substance: SUVOREXANT
     Indication: TRANSITIONAL CELL CARCINOMA
     Dosage: 15 MG, QD
     Route: 048
     Dates: start: 20180418, end: 20180424
  9. AMITIZA [Concomitant]
     Active Substance: LUBIPROSTONE
     Indication: TRANSITIONAL CELL CARCINOMA
     Dosage: 24 MICROGRAM, QD
     Route: 048
     Dates: start: 20180425, end: 20180509
  10. KEYTRUDA [Suspect]
     Active Substance: PEMBROLIZUMAB
     Indication: TRANSITIONAL CELL CARCINOMA
     Dosage: 200 MG, Q3W
     Route: 041
     Dates: start: 20180404, end: 20180606
  11. SENNOSIDE [Concomitant]
     Active Substance: SENNOSIDES
     Indication: TRANSITIONAL CELL CARCINOMA
     Dosage: 24 MG, PRN
     Route: 048
     Dates: start: 20180308, end: 20180522
  12. TAPENTA [Concomitant]
     Active Substance: TAPENTADOL HYDROCHLORIDE
     Indication: TRANSITIONAL CELL CARCINOMA
     Dosage: 50 MG, BID
     Route: 048
     Dates: start: 20180418, end: 20180425
  13. ENSURE [Concomitant]
     Active Substance: AMINO ACIDS\DEXTROSE\ELECTROLYTES NOS\SOYBEAN OIL\VITAMINS
     Indication: TRANSITIONAL CELL CARCINOMA
     Dosage: 250 MG, QD
     Route: 048
     Dates: start: 20180516, end: 20180612
  14. OXYCONTIN [Concomitant]
     Active Substance: OXYCODONE HYDROCHLORIDE
     Dosage: 10 MG, QD
     Route: 048
     Dates: start: 20180502, end: 20180523
  15. TRAMAL [Concomitant]
     Active Substance: TRAMADOL
     Indication: TRANSITIONAL CELL CARCINOMA
     Dosage: 100 MG, QID
     Route: 048
     Dates: start: 20180404, end: 20180406
  16. NOVAMIN (PROCHLORPERAZINE) [Concomitant]
     Active Substance: PROCHLORPERAZINE
     Indication: TRANSITIONAL CELL CARCINOMA
     Dosage: 5 G, PRN
     Route: 048
  17. OXYCONTIN [Concomitant]
     Active Substance: OXYCODONE HYDROCHLORIDE
     Dosage: 20 MG, BID
     Route: 048
     Dates: start: 20180524
  18. LYRICA [Concomitant]
     Active Substance: PREGABALIN
     Indication: TRANSITIONAL CELL CARCINOMA
     Dosage: UNK UNK, BID
     Route: 048
     Dates: start: 20171228, end: 20180619
  19. TAPENTA [Concomitant]
     Active Substance: TAPENTADOL HYDROCHLORIDE
     Dosage: 25 MG, QD
     Route: 048
     Dates: start: 20180426, end: 20180429

REACTIONS (3)
  - Pulmonary fibrosis [Unknown]
  - Adverse event [Unknown]
  - Malignant neoplasm progression [Unknown]
